FAERS Safety Report 8733553 (Version 3)
Quarter: 2012Q4

REPORT INFORMATION
  Report Type: 
  Country: JP (occurrence: JP)
  Receive Date: 20120821
  Receipt Date: 20120914
  Transmission Date: 20130627
  Serious: Yes (Hospitalization, Other)
  Sender: FDA-Public Use
  Company Number: JP-UCBSA-063699

PATIENT
  Age: 55 Year
  Sex: Male
  Weight: 50 kg

DRUGS (7)
  1. E KEPPRA [Suspect]
     Indication: EPILEPSY
     Route: 048
     Dates: start: 20120730, end: 20120802
  2. TEGRETOL [Concomitant]
     Dosage: DAILY DOSE: 600 MG
     Route: 048
  3. TEGRETOL [Concomitant]
     Dosage: DOSE: 200 MG
     Route: 048
  4. TEGRETOL [Concomitant]
     Dosage: DAILY ODSE: 1600 MG
     Route: 048
     Dates: start: 20120316
  5. AMLODIPINE OD [Concomitant]
     Dosage: DAILY DOSE : 5 MG
     Route: 048
     Dates: start: 20110217
  6. SELBEX [Concomitant]
     Dosage: DAILY DOSE : 450 MG
     Route: 048
     Dates: start: 20110217
  7. JUVELA N [Concomitant]
     Dosage: DAILY DOSE: 900 MG
     Route: 048
     Dates: start: 20110217

REACTIONS (1)
  - Neuroleptic malignant syndrome [Recovered/Resolved]
